FAERS Safety Report 8294191-2 (Version None)
Quarter: 2012Q2

REPORT INFORMATION
  Report Type: 
  Country: None (occurrence: None)
  Receive Date: 20120418
  Receipt Date: 20120416
  Transmission Date: 20120825
  Serious: Yes (Death, Other)
  Sender: FDA-Public Use
  Company Number: PHEH2006US03646

PATIENT
  Sex: Female
  Weight: 58.957 kg

DRUGS (14)
  1. AREDIA [Suspect]
     Dosage: UNK UKN, QMO
  2. DYAZIDE [Concomitant]
  3. TYLENOL W/ CODEINE NO. 3 [Concomitant]
  4. ANTINEOPLASTIC AGENTS [Concomitant]
     Dosage: UNK UKN, UNK
     Dates: end: 20050201
  5. FASLODEX [Concomitant]
     Dosage: UNK UKN, QMO
  6. VITAMIN E [Concomitant]
     Dosage: 400 IU, QD
  7. ZOMETA [Suspect]
     Indication: METASTASES TO BONE
     Dosage: UNK UKN, MONTHLY
     Route: 042
     Dates: end: 20051001
  8. TRIAMTERENE [Concomitant]
     Dosage: UNK UKN, QD
  9. DEXAMETHASONE [Concomitant]
  10. FEMARA [Concomitant]
     Dosage: 2.5 MG, UNK
  11. POTASSIUM CHLORIDE [Concomitant]
     Dosage: 10 MEQ, BID
  12. ANTINEOPLASTIC AGENTS [Concomitant]
     Dosage: UNK UKN, UNK
     Dates: start: 20060301
  13. VITAMIN B-12 [Concomitant]
     Dosage: 500 MG, QD
  14. RADIATION [Concomitant]
     Dosage: UNK UKN, UNK
     Dates: end: 20041001

REACTIONS (19)
  - NEOPLASM MALIGNANT [None]
  - INTERVERTEBRAL DISC DEGENERATION [None]
  - METASTASES TO LIVER [None]
  - SWOLLEN TONGUE [None]
  - BACK PAIN [None]
  - OSTEONECROSIS OF JAW [None]
  - TONGUE DISORDER [None]
  - BACTERIAL INFECTION [None]
  - ANXIETY [None]
  - CHEST PAIN [None]
  - DECREASED INTEREST [None]
  - ABDOMINAL PAIN [None]
  - BONE DISORDER [None]
  - PAIN [None]
  - PRIMARY SEQUESTRUM [None]
  - COUGH [None]
  - NEOPLASM PROGRESSION [None]
  - ORAL PAIN [None]
  - ATELECTASIS [None]
